FAERS Safety Report 8425899-3 (Version None)
Quarter: 2012Q2

REPORT INFORMATION
  Report Type: 
  Country: None (occurrence: None)
  Receive Date: 20120611
  Receipt Date: 20120531
  Transmission Date: 20120825
  Serious: Yes (Other)
  Sender: FDA-Public Use
  Company Number: JP-JNJFOC-20120601521

PATIENT
  Sex: Male
  Weight: 58 kg

DRUGS (7)
  1. STELARA [Suspect]
     Indication: PSORIASIS
     Route: 058
     Dates: start: 20120511
  2. URSODIOL [Concomitant]
     Route: 048
  3. STELARA [Suspect]
     Route: 058
     Dates: start: 20120302
  4. ISONIAZID [Suspect]
     Indication: PROPHYLAXIS
     Route: 048
     Dates: start: 20111014, end: 20111215
  5. ISONIAZID [Suspect]
     Route: 048
  6. STELARA [Suspect]
     Route: 058
     Dates: start: 20111021
  7. STELARA [Suspect]
     Route: 058
     Dates: start: 20111118

REACTIONS (1)
  - LIVER DISORDER [None]
